FAERS Safety Report 18971247 (Version 4)
Quarter: 2022Q3

REPORT INFORMATION
  Report Type: Spontaneous
  Country: CA (occurrence: CA)
  Receive Date: 20210305
  Receipt Date: 20220803
  Transmission Date: 20221027
  Serious: Yes (Other)
  Sender: FDA-Public Use
  Company Number: CA-BAUSCH-BL-2021-006667

PATIENT
  Age: 27 Year
  Sex: Female

DRUGS (51)
  1. METFORMIN [Suspect]
     Active Substance: METFORMIN HYDROCHLORIDE
     Indication: Type 2 diabetes mellitus
     Route: 065
  2. NIFEDIPINE [Suspect]
     Active Substance: NIFEDIPINE
     Indication: Hypertension
     Route: 048
  3. NIFEDIPINE [Suspect]
     Active Substance: NIFEDIPINE
     Route: 065
  4. NIFEDIPINE [Suspect]
     Active Substance: NIFEDIPINE
     Route: 065
  5. NIFEDIPINE [Suspect]
     Active Substance: NIFEDIPINE
     Route: 065
  6. NIFEDIPINE [Suspect]
     Active Substance: NIFEDIPINE
     Route: 065
  7. NIFEDIPINE [Suspect]
     Active Substance: NIFEDIPINE
     Route: 065
  8. NIFEDIPINE [Suspect]
     Active Substance: NIFEDIPINE
     Route: 048
  9. NIFEDIPINE [Suspect]
     Active Substance: NIFEDIPINE
     Route: 065
  10. NIFEDIPINE [Suspect]
     Active Substance: NIFEDIPINE
     Route: 065
  11. NIFEDIPINE [Suspect]
     Active Substance: NIFEDIPINE
     Route: 048
  12. ASPIRIN [Suspect]
     Active Substance: ASPIRIN
     Indication: Prophylaxis
     Route: 065
  13. ASPIRIN [Suspect]
     Active Substance: ASPIRIN
     Route: 022
  14. ASPIRIN [Suspect]
     Active Substance: ASPIRIN
     Route: 064
  15. CHLORHEXIDINE [Suspect]
     Active Substance: CHLORHEXIDINE
     Indication: Gingival hypertrophy
     Route: 065
  16. CHLORHEXIDINE [Suspect]
     Active Substance: CHLORHEXIDINE
     Route: 064
  17. DICLECTIN [Suspect]
     Active Substance: DOXYLAMINE SUCCINATE\PYRIDOXINE HYDROCHLORIDE
     Indication: Prophylaxis
     Route: 048
  18. DICLECTIN [Suspect]
     Active Substance: DOXYLAMINE SUCCINATE\PYRIDOXINE HYDROCHLORIDE
     Route: 064
  19. INSULIN NOS [Suspect]
     Active Substance: INSULIN NOS
     Indication: Type 2 diabetes mellitus
     Route: 065
  20. INSULIN NOS [Suspect]
     Active Substance: INSULIN NOS
     Route: 048
  21. INSULIN NOS [Suspect]
     Active Substance: INSULIN NOS
     Route: 048
  22. METHYLDOPA [Suspect]
     Active Substance: METHYLDOPA
     Indication: Hypertension
     Route: 048
  23. METHYLDOPA [Suspect]
     Active Substance: METHYLDOPA
     Route: 064
  24. SILDENAFIL [Suspect]
     Active Substance: SILDENAFIL
     Indication: Foetal growth restriction
     Route: 048
  25. SILDENAFIL [Suspect]
     Active Substance: SILDENAFIL
     Route: 048
  26. SILDENAFIL [Suspect]
     Active Substance: SILDENAFIL
     Route: 048
  27. SILDENAFIL [Suspect]
     Active Substance: SILDENAFIL
     Route: 065
  28. SILDENAFIL [Suspect]
     Active Substance: SILDENAFIL
     Route: 065
  29. SILDENAFIL [Suspect]
     Active Substance: SILDENAFIL
     Route: 048
  30. SILDENAFIL [Suspect]
     Active Substance: SILDENAFIL
     Route: 065
  31. SILDENAFIL [Suspect]
     Active Substance: SILDENAFIL
     Route: 064
  32. ERGOCALCIFEROL [Suspect]
     Active Substance: ERGOCALCIFEROL
     Indication: Prophylaxis
     Route: 065
  33. NIFEDIPINE [Suspect]
     Active Substance: NIFEDIPINE
     Indication: Hypertension
     Route: 023
  34. CALCIUM PANTOTHENATE [Suspect]
     Active Substance: CALCIUM PANTOTHENATE
     Indication: Product used for unknown indication
     Route: 064
  35. CHLORAPREP [Suspect]
     Active Substance: CHLORHEXIDINE GLUCONATE\ISOPROPYL ALCOHOL
     Indication: Product used for unknown indication
     Route: 064
  36. CHLORHEXIDINE GLUCONATE [Suspect]
     Active Substance: CHLORHEXIDINE GLUCONATE
     Indication: Product used for unknown indication
     Route: 064
  37. CYANOCOBALAMIN [Suspect]
     Active Substance: CYANOCOBALAMIN
     Indication: Product used for unknown indication
     Route: 064
  38. .ALPHA.-TOCOPHEROL ACETATE, D- [Suspect]
     Active Substance: .ALPHA.-TOCOPHEROL ACETATE, D-
     Indication: Product used for unknown indication
     Route: 064
  39. FOLIC ACID [Suspect]
     Active Substance: FOLIC ACID
     Indication: Product used for unknown indication
     Route: 065
  40. HUMULIN R [Suspect]
     Active Substance: INSULIN HUMAN
     Indication: Type 2 diabetes mellitus
     Route: 064
  41. INSULIN NOS [Suspect]
     Active Substance: INSULIN NOS
     Indication: Type 2 diabetes mellitus
     Dosage: GLOBULES ORAL
     Route: 064
  42. NICOTINAMIDE [Suspect]
     Active Substance: NIACINAMIDE
     Indication: Product used for unknown indication
     Route: 064
  43. NICOTINIC ACID [Suspect]
     Active Substance: NIACIN
     Indication: Product used for unknown indication
     Route: 065
  44. PANTOTHENIC ACID [Suspect]
     Active Substance: PANTOTHENIC ACID
     Indication: Product used for unknown indication
     Route: 065
  45. PYRIDOXINE [Suspect]
     Active Substance: PYRIDOXINE
     Indication: Product used for unknown indication
     Route: 064
  46. RIBOFLAVIN [Suspect]
     Active Substance: RIBOFLAVIN
     Indication: Product used for unknown indication
     Route: 064
  47. VITAMIN A [Suspect]
     Active Substance: VITAMIN A
     Indication: Product used for unknown indication
     Route: 065
  48. VITAMIN B1 [Suspect]
     Active Substance: THIAMINE HYDROCHLORIDE
     Indication: Product used for unknown indication
     Route: 064
  49. VITAMIN C [Suspect]
     Active Substance: ASCORBIC ACID
     Indication: Product used for unknown indication
     Route: 064
  50. VITAMIN C [Suspect]
     Active Substance: ASCORBIC ACID
     Route: 065
  51. ZINC [Suspect]
     Active Substance: ZINC
     Indication: Product used for unknown indication
     Route: 064

REACTIONS (4)
  - Premature delivery [Not Recovered/Not Resolved]
  - Maternal exposure during pregnancy [Not Recovered/Not Resolved]
  - Foetal exposure during pregnancy [Not Recovered/Not Resolved]
  - Off label use [Not Recovered/Not Resolved]
